FAERS Safety Report 7040989-8 (Version None)
Quarter: 2010Q4

REPORT INFORMATION
  Report Type: 
  Country: None (occurrence: None)
  Receive Date: 20101013
  Receipt Date: 20100930
  Transmission Date: 20110411
  Serious: Yes (Hospitalization, Other)
  Sender: FDA-Public Use
  Company Number: US-ELI_LILLY_AND_COMPANY-US201007007177

PATIENT
  Sex: Female

DRUGS (10)
  1. FORTEO [Suspect]
     Indication: OSTEOPOROSIS
     Dosage: 20 UG, DAILY (1/D)
  2. ULTRAM [Concomitant]
  3. FLEXERIL [Concomitant]
  4. LIPITOR [Concomitant]
     Indication: BLOOD CHOLESTEROL
     Dosage: 20 MG, EACH EVENING
  5. LISINOPRIL [Concomitant]
     Indication: BLOOD PRESSURE
     Dosage: 20 MG, DAILY (1/D)
  6. VITAMIN D [Concomitant]
  7. OMEPRAZOLE [Concomitant]
  8. TESSALON [Concomitant]
  9. XANAX [Concomitant]
  10. CALCIUM [Concomitant]
     Dosage: 600 MG, 2/D

REACTIONS (7)
  - CONTUSION [None]
  - FALL [None]
  - FEMUR FRACTURE [None]
  - LIMB INJURY [None]
  - PELVIC FRACTURE [None]
  - SPINAL COMPRESSION FRACTURE [None]
  - VOMITING [None]
